FAERS Safety Report 23456013 (Version 1)
Quarter: 2024Q1

REPORT INFORMATION
  Report Type: Spontaneous
  Country: US (occurrence: None)
  Receive Date: 20240129
  Receipt Date: 20240129
  Transmission Date: 20240410
  Serious: Yes (Hospitalization)
  Sender: FDA-Public Use
  Company Number: None

PATIENT
  Age: 40 Year
  Sex: Female

DRUGS (8)
  1. AMBRISENTAN [Suspect]
     Active Substance: AMBRISENTAN
     Indication: Pulmonary hypertension
     Dosage: FREQUENCY : DAILY;?
     Route: 048
     Dates: start: 20220114
  2. PEPCID [Concomitant]
     Active Substance: FAMOTIDINE
  3. MUCINEX [Concomitant]
     Active Substance: GUAIFENESIN
  4. MAGNESIUM [Concomitant]
     Active Substance: MAGNESIUM
  5. POTASSIUM [Concomitant]
     Active Substance: POTASSIUM
  6. FUROSEMIDE [Concomitant]
     Active Substance: FUROSEMIDE
  7. TADALAFIL [Concomitant]
     Active Substance: TADALAFIL
  8. UPTRAVI [Concomitant]
     Active Substance: SELEXIPAG

REACTIONS (4)
  - Pneumonia [None]
  - Sepsis [None]
  - Cardiac failure congestive [None]
  - Therapy interrupted [None]

NARRATIVE: CASE EVENT DATE: 20240104
